FAERS Safety Report 15971401 (Version 1)
Quarter: 2019Q1

REPORT INFORMATION
  Report Type: Report from Study
  Country: US (occurrence: US)
  Receive Date: 20190215
  Receipt Date: 20190215
  Transmission Date: 20190418
  Serious: No
  Sender: FDA-Public Use
  Company Number: US-AMAG PHARMACEUTICALS, INC.-AMAG201900103

PATIENT
  Age: 24 Year
  Sex: Female

DRUGS (3)
  1. MAKENA [Suspect]
     Active Substance: HYDROXYPROGESTERONE CAPROATE
     Indication: PREMATURE DELIVERY
     Dosage: 250 MG/ML, WEEKLY
     Route: 058
     Dates: start: 20181022
  2. BENADRYL [Concomitant]
     Active Substance: DIPHENHYDRAMINE HYDROCHLORIDE
     Indication: PRODUCT USED FOR UNKNOWN INDICATION
     Dosage: 100 MG (2 TABS OF 50 MG), QD
     Route: 065
     Dates: start: 20181126, end: 20181127
  3. PRENATAL VITAMINS [Concomitant]
     Active Substance: VITAMINS
     Indication: PRENATAL CARE
     Dosage: 29MG-1MG-250MG, UNK
     Route: 065
     Dates: start: 20180911

REACTIONS (1)
  - Uterine contractions during pregnancy [Recovered/Resolved]

NARRATIVE: CASE EVENT DATE: 20181208
